FAERS Safety Report 12287585 (Version 1)
Quarter: 2016Q2

REPORT INFORMATION
  Report Type: Spontaneous
  Country: CA (occurrence: CA)
  Receive Date: 20160420
  Receipt Date: 20160420
  Transmission Date: 20160815
  Serious: Yes (Other)
  Sender: FDA-Public Use
  Company Number: CA-JNJFOC-20160417503

PATIENT

DRUGS (4)
  1. DEXAMETHASONE. [Concomitant]
     Active Substance: DEXAMETHASONE
     Indication: PREMEDICATION
     Dosage: FOR 4 DAYS STARTING THE DAY PRIOR TRAB
     Route: 065
  2. ECTEINASCIDIN [Suspect]
     Active Substance: TRABECTEDIN
     Indication: NEOPLASM
     Route: 042
  3. ECTEINASCIDIN [Suspect]
     Active Substance: TRABECTEDIN
     Indication: NEOPLASM
     Route: 042
  4. DEXAMETHASONE. [Concomitant]
     Active Substance: DEXAMETHASONE
     Indication: NEOPLASM
     Dosage: FOR 4 DAYS STARTING THE DAY PRIOR TRAB
     Route: 065

REACTIONS (6)
  - Infection [Unknown]
  - Incorrect dose administered [Unknown]
  - Off label use [Unknown]
  - Transaminases increased [Unknown]
  - Hypokalaemia [Unknown]
  - Product use issue [Unknown]
